FAERS Safety Report 10586452 (Version 5)
Quarter: 2015Q4

REPORT INFORMATION
  Report Type: Spontaneous
  Country: US (occurrence: US)
  Receive Date: 20141117
  Receipt Date: 20151117
  Transmission Date: 20160304
  Serious: Yes (Hospitalization, Disabling)
  Sender: FDA-Public Use
  Company Number: US-UCBSA-2014017740

PATIENT
  Age: 36 Year
  Sex: Female

DRUGS (9)
  1. KEPPRA XR [Suspect]
     Active Substance: LEVETIRACETAM
     Indication: SEIZURE
     Dosage: 1500 MG, 2X/DAY (BID) (DOSE: 750MG 2 TAB BID)
     Route: 048
     Dates: start: 20121114
  2. DILANTIN [Concomitant]
     Active Substance: PHENYTOIN
     Indication: PRODUCT USED FOR UNKNOWN INDICATION
     Dosage: UNK
  3. VIMPAT [Suspect]
     Active Substance: LACOSAMIDE
     Indication: SEIZURE
     Dosage: 600 MG DAILY (2 X 150 MG TABLETS IN THE MORNING AND 2 X 150 MG TABLETS IN THE EVENING)
     Route: 048
     Dates: start: 201509
  4. IMIPRAMIN [Concomitant]
     Active Substance: IMIPRAMINE
     Indication: INCONTINENCE
     Dosage: 50 MG, ONCE DAILY (QD) (ONCE AT NIGHT); STARTED ABOUT AFTER 2000
     Route: 048
  5. ZYRTEC [Concomitant]
     Active Substance: CETIRIZINE HYDROCHLORIDE
     Indication: HYPERSENSITIVITY
     Dosage: DAILY; 3-4 YEARS AGO
     Route: 048
  6. KEPPRA XR [Suspect]
     Active Substance: LEVETIRACETAM
     Dosage: 4000 MG DAILY (2000 MG IN THE MORNING AND 2000 MG IN THE NIGHT)
     Route: 048
     Dates: start: 201509
  7. TOPAMAX [Concomitant]
     Active Substance: TOPIRAMATE
     Indication: EPILEPSY
     Dosage: 200 MG, ONCE DAILY (QD) (ONCE AT NIGHT); STARTED 4 YEARS AGO
     Route: 048
  8. KLONOPIN [Concomitant]
     Active Substance: CLONAZEPAM
     Indication: EPILEPSY
     Dosage: 1 MG, ONCE DAILY (QD) (ONCE AT NIGHT)
     Route: 048
     Dates: start: 201509
  9. LISINOPRIL. [Concomitant]
     Active Substance: LISINOPRIL
     Indication: BLOOD PRESSURE MEASUREMENT
     Dosage: 20 MG, ONCE DAILY (QD); 2 YEARS AGO
     Route: 048

REACTIONS (5)
  - Inappropriate schedule of drug administration [Unknown]
  - Overdose [Unknown]
  - Generalised tonic-clonic seizure [Not Recovered/Not Resolved]
  - Seizure [Unknown]
  - Off label use [Unknown]

NARRATIVE: CASE EVENT DATE: 20121114
